FAERS Safety Report 6235663-1 (Version None)
Quarter: 2009Q2

REPORT INFORMATION
  Report Type: 
  Country: None (occurrence: None)
  Receive Date: 20090616
  Receipt Date: 20090603
  Transmission Date: 20091009
  Serious: Yes (Hospitalization, Other)
  Sender: FDA-Public Use
  Company Number: 23553J08USA

PATIENT
  Age: 49 Year
  Sex: Female

DRUGS (3)
  1. REBIF [Suspect]
     Indication: MULTIPLE SCLEROSIS
     Dosage: 44 MCG, 3 IN 1 WEEKS, SUBCUTANEOUS
     Route: 058
     Dates: start: 20060804
  2. ARICEPT [Concomitant]
  3. DEPAKOTA (VALPROATE SEMISODIUM) [Concomitant]

REACTIONS (3)
  - BACK DISORDER [None]
  - CONVULSION [None]
  - DISEASE RECURRENCE [None]
